FAERS Safety Report 12114882 (Version 1)
Quarter: 2016Q1

REPORT INFORMATION
  Report Type: Spontaneous
  Country: ES (occurrence: ES)
  Receive Date: 20160225
  Receipt Date: 20160225
  Transmission Date: 20160526
  Serious: Yes (Other)
  Sender: FDA-Public Use
  Company Number: ES-BAYER-2016-018333

PATIENT
  Age: 34 Year
  Sex: Female

DRUGS (1)
  1. ULTRAVIST [Suspect]
     Active Substance: IOPROMIDE
     Indication: COMPUTERISED TOMOGRAM ABDOMEN
     Dosage: 300 MG/ML, ONCE
     Dates: start: 20150116, end: 20150116

REACTIONS (5)
  - Dizziness [None]
  - Vomiting [None]
  - Skin reaction [None]
  - Hypotension [None]
  - Hypersensitivity [None]

NARRATIVE: CASE EVENT DATE: 20150116
